FAERS Safety Report 7744472-3 (Version None)
Quarter: 2011Q3

REPORT INFORMATION
  Report Type: 
  Country: None (occurrence: None)
  Receive Date: 20110912
  Receipt Date: 20110907
  Transmission Date: 20111222
  Serious: Yes (Other)
  Sender: FDA-Public Use
  Company Number: CHPA2011US12125

PATIENT
  Age: 79 Year
  Sex: Female

DRUGS (4)
  1. PERDIEM OVERNIGHT RELIEF PILLS [Suspect]
     Indication: CONSTIPATION
     Dosage: 2 DF, QD
     Route: 048
     Dates: start: 19910101
  2. ANTIDEPRESSANTS [Concomitant]
  3. THYROID THERAPY [Concomitant]
  4. HORMONES [Concomitant]

REACTIONS (4)
  - MASTECTOMY [None]
  - FIBROMYALGIA [None]
  - BREAST CANCER [None]
  - INCORRECT DRUG ADMINISTRATION DURATION [None]
